FAERS Safety Report 8063938-2 (Version None)
Quarter: 2012Q1

REPORT INFORMATION
  Report Type: 
  Country: None (occurrence: None)
  Receive Date: 20120123
  Receipt Date: 20120113
  Transmission Date: 20120608
  Serious: Yes (Other)
  Sender: FDA-Public Use
  Company Number: US-ROCHE-1030682

PATIENT
  Sex: Female
  Weight: 63.56 kg

DRUGS (5)
  1. ULTRAM [Concomitant]
     Indication: FIBROMYALGIA
  2. KLONOPIN [Concomitant]
     Indication: FIBROMYALGIA
  3. GABAPENTIN [Suspect]
     Indication: FIBROMYALGIA
  4. NAPROSYN [Suspect]
     Indication: FIBROMYALGIA
  5. LYRICA [Suspect]
     Indication: FIBROMYALGIA
     Route: 048

REACTIONS (8)
  - BLISTER [None]
  - NARCOLEPSY [None]
  - PAIN IN EXTREMITY [None]
  - JOINT SWELLING [None]
  - ARTHRALGIA [None]
  - SCAR [None]
  - ABDOMINAL DISCOMFORT [None]
  - PAIN [None]
